FAERS Safety Report 5381998-4 (Version None)
Quarter: 2007Q3

REPORT INFORMATION
  Report Type: 
  Country: None (occurrence: None)
  Receive Date: 20070709
  Receipt Date: 20070704
  Transmission Date: 20080115
  Serious: Yes (Disabling)
  Sender: FDA-Public Use
  Company Number: B0477419A

PATIENT
  Sex: Male

DRUGS (2)
  1. AUGMENTIN '125' [Suspect]
     Indication: PREVENTIVE SURGERY
     Route: 042
  2. UNSPECIFIED MEDICATIONS [Concomitant]
     Indication: COMA
     Route: 065

REACTIONS (12)
  - ANAPHYLACTIC SHOCK [None]
  - ANOXIC ENCEPHALOPATHY [None]
  - BRAIN HYPOXIA [None]
  - BRAIN OEDEMA [None]
  - CARDIAC ARREST [None]
  - GENERAL PHYSICAL HEALTH DETERIORATION [None]
  - LOSS OF CONSCIOUSNESS [None]
  - MENTAL DISORDER [None]
  - NERVOUS SYSTEM DISORDER [None]
  - QUADRIPARESIS [None]
  - SHOCK [None]
  - SUFFOCATION FEELING [None]
